FAERS Safety Report 8363166-7 (Version None)
Quarter: 2012Q2

REPORT INFORMATION
  Report Type: 
  Country: None (occurrence: None)
  Receive Date: 20120516
  Receipt Date: 20111108
  Transmission Date: 20120825
  Serious: No
  Sender: FDA-Public Use
  Company Number: US-ALEXION-A201101693

PATIENT
  Sex: Male

DRUGS (4)
  1. COUMADIN [Suspect]
     Indication: ANTIPHOSPHOLIPID ANTIBODIES POSITIVE
  2. LEVAQUIN [Suspect]
     Indication: INFECTION PROPHYLAXIS
  3. COUMADIN [Suspect]
     Indication: ISCHAEMIC STROKE
     Dosage: UNK
     Dates: start: 20091201
  4. SOLIRIS [Suspect]
     Indication: PAROXYSMAL NOCTURNAL HAEMOGLOBINURIA
     Dosage: 1200 MG, Q12 DAYS
     Route: 042

REACTIONS (4)
  - HAEMOLYSIS [None]
  - DYSPHAGIA [None]
  - ANTICOAGULATION DRUG LEVEL ABOVE THERAPEUTIC [None]
  - INFECTION [None]
